FAERS Safety Report 18637337 (Version 1)
Quarter: 2020Q4

REPORT INFORMATION
  Report Type: Report from Study
  Country: US (occurrence: US)
  Receive Date: 20201218
  Receipt Date: 20201218
  Transmission Date: 20210114
  Serious: No
  Sender: FDA-Public Use
  Company Number: US-REGENERON PHARMACEUTICALS, INC.-2020-70172

PATIENT

DRUGS (4)
  1. PROCRIT [Concomitant]
     Active Substance: ERYTHROPOIETIN
     Indication: PRODUCT USED FOR UNKNOWN INDICATION
  2. EYLEA [Suspect]
     Active Substance: AFLIBERCEPT
     Indication: ANAEMIA
     Dosage: 2 MG/0.05 ML SDV INTO EACH EYE, EVERY 4 WEEKS
     Route: 031
  3. EYLEA [Suspect]
     Active Substance: AFLIBERCEPT
     Indication: CHRONIC KIDNEY DISEASE
  4. EYLEA [Suspect]
     Active Substance: AFLIBERCEPT
     Indication: END STAGE RENAL DISEASE

REACTIONS (2)
  - Eye disorder [Unknown]
  - Off label use [Unknown]
